FAERS Safety Report 14627355 (Version 2)
Quarter: 2018Q1

REPORT INFORMATION
  Report Type: Spontaneous
  Country: CA (occurrence: CA)
  Receive Date: 20180312
  Receipt Date: 20180321
  Transmission Date: 20180509
  Serious: Yes (Other)
  Sender: FDA-Public Use
  Company Number: CA-PFIZER INC-2018101968

PATIENT

DRUGS (1)
  1. PANTOLOC [Suspect]
     Active Substance: PANTOPRAZOLE SODIUM
     Dosage: 10 ML, 2X/DAY (BID)

REACTIONS (1)
  - Vascular access site occlusion [Unknown]

NARRATIVE: CASE EVENT DATE: 20180212
